FAERS Safety Report 14247155 (Version 3)
Quarter: 2019Q1

REPORT INFORMATION
  Report Type: Spontaneous
  Country: US (occurrence: US)
  Receive Date: 20171204
  Receipt Date: 20190103
  Transmission Date: 20190417
  Serious: No
  Sender: FDA-Public Use
  Company Number: US-PFIZER INC-2017518260

PATIENT
  Age: 67 Year
  Sex: Female
  Weight: 79.38 kg

DRUGS (1)
  1. LYRICA [Suspect]
     Active Substance: PREGABALIN
     Indication: NEUROPATHY PERIPHERAL
     Dosage: 150 MG, 2X/DAY (2X75 MG CAPSULES BY MOUTH TWO TIMES A DAY)
     Route: 048
     Dates: end: 201812

REACTIONS (3)
  - Dyspnoea [Unknown]
  - Insomnia [Unknown]
  - Pain [Unknown]
